FAERS Safety Report 11953254 (Version 2)
Quarter: 2016Q1

REPORT INFORMATION
  Report Type: Spontaneous
  Country: JP (occurrence: JP)
  Receive Date: 20160126
  Receipt Date: 20160205
  Transmission Date: 20160526
  Serious: Yes (Hospitalization, Other)
  Sender: FDA-Public Use
  Company Number: JP-PFIZER INC-2016030635

PATIENT
  Age: 33 Year
  Sex: Female

DRUGS (1)
  1. AMLODIPINE BESILATE [Suspect]
     Active Substance: AMLODIPINE BESYLATE
     Dosage: 750 MG, SINGLE
     Route: 048

REACTIONS (5)
  - Vomiting [Unknown]
  - Malaise [Unknown]
  - Suicide attempt [Unknown]
  - Intentional overdose [Unknown]
  - Shock [Recovered/Resolved]
